FAERS Safety Report 21085412 (Version 3)
Quarter: 2023Q4

REPORT INFORMATION
  Report Type: Report from Study
  Country: US (occurrence: US)
  Receive Date: 20220714
  Receipt Date: 20231211
  Transmission Date: 20240110
  Serious: No
  Sender: FDA-Public Use
  Company Number: US-ACADIA PHARMACEUTICALS INC.-ACA-2022-PIM-002161

PATIENT
  Sex: Male

DRUGS (1)
  1. NUPLAZID [Suspect]
     Active Substance: PIMAVANSERIN TARTRATE
     Indication: Parkinson^s disease
     Dosage: 34 MILLIGRAM, QD
     Route: 048
     Dates: start: 20190523

REACTIONS (5)
  - Product dose omission issue [Unknown]
  - Nonspecific reaction [Unknown]
  - Nonspecific reaction [Unknown]
  - Hallucination [Not Recovered/Not Resolved]
  - Hallucination [Recovering/Resolving]
